FAERS Safety Report 8192329-9 (Version None)
Quarter: 2012Q1

REPORT INFORMATION
  Report Type: 
  Country: None (occurrence: None)
  Receive Date: 20120307
  Receipt Date: 20120227
  Transmission Date: 20120608
  Serious: Yes (Hospitalization, Other)
  Sender: FDA-Public Use
  Company Number: US-ASTRAZENECA-2011SE69694

PATIENT
  Age: 74 Year
  Sex: Female

DRUGS (3)
  1. OTHER [Suspect]
     Route: 065
  2. PULMICORT [Suspect]
     Route: 055
  3. NEXIUM [Concomitant]

REACTIONS (3)
  - PNEUMONIA [None]
  - HERPES ZOSTER [None]
  - MENINGITIS VIRAL [None]
